FAERS Safety Report 10543180 (Version 1)
Quarter: 2014Q4

REPORT INFORMATION
  Report Type: Spontaneous
  Country: US (occurrence: None)
  Receive Date: 20141024
  Receipt Date: 20141024
  Transmission Date: 20150529
  Serious: Yes (Disabling)
  Sender: FDA-Public Use
  Company Number: None

PATIENT
  Age: 62 Year
  Sex: Female
  Weight: 71.67 kg

DRUGS (1)
  1. PRILOSEC [Suspect]
     Active Substance: OMEPRAZOLE MAGNESIUM

REACTIONS (8)
  - Nausea [None]
  - Food poisoning [None]
  - Diarrhoea [None]
  - Gastritis [None]
  - Muscle twitching [None]
  - Blepharospasm [None]
  - Weight decreased [None]
  - Dizziness [None]
